FAERS Safety Report 6645099-7 (Version None)
Quarter: 2010Q1

REPORT INFORMATION
  Report Type: 
  Country: None (occurrence: None)
  Receive Date: 20100322
  Receipt Date: 20100311
  Transmission Date: 20100710
  Serious: Yes (Other)
  Sender: FDA-Public Use
  Company Number: US-PFIZER INC-2010020065

PATIENT
  Sex: Male
  Weight: 89.342 kg

DRUGS (4)
  1. CHANTIX [Suspect]
     Indication: SMOKING CESSATION THERAPY
     Dosage: 0.5 MG, DAILY
     Route: 048
     Dates: start: 20100101
  2. ZOCOR [Concomitant]
     Dosage: UNK
  3. WARFARIN [Concomitant]
     Dosage: 7 MG, UNK
  4. HYDROCODONE [Concomitant]
     Dosage: 7.5 MG, UNK

REACTIONS (4)
  - ABNORMAL DREAMS [None]
  - INSOMNIA [None]
  - PANIC ATTACK [None]
  - PULMONARY FIBROSIS [None]
